FAERS Safety Report 9994753 (Version 1)
Quarter: 2014Q1

REPORT INFORMATION
  Report Type: Spontaneous
  Country: US (occurrence: None)
  Receive Date: 20140307
  Receipt Date: 20140307
  Transmission Date: 20141002
  Serious: Yes (Life-Threatening, Disabling, Other)
  Sender: FDA-Public Use
  Company Number: None

PATIENT
  Age: 68 Year
  Sex: Female
  Weight: 48.54 kg

DRUGS (2)
  1. OMEPRAZOLE DELAYED-RELEASE [Suspect]
     Indication: GASTRITIS EROSIVE
     Route: 048
     Dates: start: 20130919, end: 20131008
  2. PRILOSEC [Suspect]
     Route: 048
     Dates: start: 20121014, end: 20131122

REACTIONS (10)
  - Constipation [None]
  - Pollakiuria [None]
  - Weight decreased [None]
  - Achlorhydria [None]
  - Malabsorption [None]
  - Visual acuity reduced [None]
  - Alopecia [None]
  - Anxiety [None]
  - Nail disorder [None]
  - Poor peripheral circulation [None]
